FAERS Safety Report 4343298-0 (Version None)
Quarter: 2004Q1

REPORT INFORMATION
  Report Type: 
  Country: None (occurrence: None)
  Receive Date: 20040325
  Receipt Date: 20040119
  Transmission Date: 20041129
  Serious: No
  Sender: FDA-Public Use
  Company Number: USA040156950

PATIENT
  Age: 56 Year
  Sex: Female
  Weight: 60 kg

DRUGS (6)
  1. FORTEO [Suspect]
     Dates: start: 20031101
  2. SEROQUEL [Concomitant]
  3. EFFEXOR [Concomitant]
  4. CELEBREX [Concomitant]
  5. ZANAFLEX [Concomitant]
  6. NEURONTIN [Concomitant]

REACTIONS (3)
  - ABDOMINAL DISTENSION [None]
  - CONSTIPATION [None]
  - WEIGHT INCREASED [None]
